FAERS Safety Report 9526445 (Version 1)
Quarter: 2013Q3

REPORT INFORMATION
  Report Type: Spontaneous
  Country: US (occurrence: US)
  Receive Date: 20130916
  Receipt Date: 20130916
  Transmission Date: 20140515
  Serious: No
  Sender: FDA-Public Use
  Company Number: US-PURDUE-USA-2011-0072703

PATIENT
  Sex: Female

DRUGS (3)
  1. DILAUDID INJECTION [Suspect]
     Indication: PRODUCT USED FOR UNKNOWN INDICATION
  2. BENADRYL /00000402/ [Suspect]
  3. ZOFRAN /00955301/ [Suspect]

REACTIONS (1)
  - Insomnia [Unknown]
